FAERS Safety Report 6303083-7 (Version None)
Quarter: 2009Q3

REPORT INFORMATION
  Report Type: 
  Country: None (occurrence: None)
  Receive Date: 20090810
  Receipt Date: 20090731
  Transmission Date: 20100115
  Serious: Yes (Life-Threatening)
  Sender: FDA-Public Use
  Company Number: US-ROCHE-645249

PATIENT
  Sex: Female

DRUGS (16)
  1. BONIVA [Suspect]
     Indication: OSTEOPOROSIS
     Route: 048
     Dates: start: 20080818
  2. LEXAPRO [Concomitant]
  3. METFORMIN HCL [Concomitant]
  4. OMEPRAZOLE [Concomitant]
  5. ZOLPIDEM [Concomitant]
  6. LISINOPRIL [Concomitant]
  7. TIOTROPIUM [Concomitant]
  8. AMLODIPINE [Concomitant]
  9. ATENOLOL [Concomitant]
  10. ESTRADIOL [Concomitant]
  11. PROMETHAZINE [Concomitant]
  12. ATORVASTATIN [Concomitant]
  13. DIGOXIN [Concomitant]
  14. ASPIRIN [Concomitant]
  15. ALBUTEROL [Concomitant]
  16. CALCIUM/VITAMIN D [Concomitant]

REACTIONS (3)
  - ABDOMINAL DISCOMFORT [None]
  - LUNG NEOPLASM MALIGNANT [None]
  - MEMORY IMPAIRMENT [None]
